FAERS Safety Report 18266427 (Version 3)
Quarter: 2020Q4

REPORT INFORMATION
  Report Type: Spontaneous
  Country: JP (occurrence: JP)
  Receive Date: 20200915
  Receipt Date: 20201130
  Transmission Date: 20210113
  Serious: Yes (Hospitalization)
  Sender: FDA-Public Use
  Company Number: JP-ELI_LILLY_AND_COMPANY-JP202009004775

PATIENT
  Age: 55 Year
  Sex: Male

DRUGS (2)
  1. TRULICITY [Suspect]
     Active Substance: DULAGLUTIDE
     Indication: TYPE 2 DIABETES MELLITUS
     Dosage: UNK
     Route: 058
  2. CARBOCISTEINE [Concomitant]
     Active Substance: CARBOCYSTEINE

REACTIONS (3)
  - Pneumonia [Recovered/Resolved]
  - Gastrointestinal disorder [Recovering/Resolving]
  - Weight decreased [Not Recovered/Not Resolved]
